FAERS Safety Report 20882697 (Version 1)
Quarter: 2022Q2

REPORT INFORMATION
  Report Type: Spontaneous
  Country: RO (occurrence: RO)
  Receive Date: 20220527
  Receipt Date: 20220527
  Transmission Date: 20220721
  Serious: Yes (Other)
  Sender: FDA-Public Use
  Company Number: RO-SUN PHARMACEUTICAL INDUSTRIES LTD-2022RR-338088

PATIENT
  Age: 67 Year
  Sex: Male

DRUGS (10)
  1. CAPECITABINE [Suspect]
     Active Substance: CAPECITABINE
     Indication: Adenocarcinoma of colon
     Dosage: 1000 MILLIGRAM/SQ. METER, BID, DAYS 1-14
     Route: 048
  2. CAPECITABINE [Suspect]
     Active Substance: CAPECITABINE
     Indication: Prostate cancer
  3. OXALIPLATIN [Suspect]
     Active Substance: OXALIPLATIN
     Indication: Prostate cancer
     Dosage: 130 MILLIGRAM/SQ. METER IN 500 ML GLUCOSE 5%, OVER 120 MINUTES REPEATED AFTER 21 DAYS
     Route: 042
  4. OXALIPLATIN [Suspect]
     Active Substance: OXALIPLATIN
     Indication: Adenocarcinoma of colon
     Dosage: 85 MILLIGRAM/SQ. METER IN 500 ML GLUCOSE 5% OVER 120 MINUTES
     Route: 042
  5. LEUCOVORIN CALCIUM [Suspect]
     Active Substance: LEUCOVORIN CALCIUM
     Indication: Prostate cancer
     Dosage: 400 MILLIGRAM/SQ. METER IN 250 ML GLUCOSE 5% OVER 120 MINUTES
     Route: 042
  6. LEUCOVORIN CALCIUM [Suspect]
     Active Substance: LEUCOVORIN CALCIUM
     Indication: Adenocarcinoma of colon
  7. PANITUMUMAB [Suspect]
     Active Substance: PANITUMUMAB
     Indication: Adenocarcinoma of colon
     Dosage: 6 MILLIGRAM/SQ. METER IN 100 ML SODIUM CHLORIDE 0.9% OVER 60 MINUTES
     Route: 042
  8. PANITUMUMAB [Suspect]
     Active Substance: PANITUMUMAB
     Indication: Prostate cancer
  9. FLUOROURACIL [Suspect]
     Active Substance: FLUOROURACIL
     Indication: Prostate cancer
     Dosage: 400 MILLIGRAM/SQ. METER OVER 10 MINUTES
     Route: 040
  10. FLUOROURACIL [Suspect]
     Active Substance: FLUOROURACIL
     Indication: Adenocarcinoma of colon
     Dosage: 2400 MILLIGRAM/SQ. METER OVER 46 HOURS
     Route: 042

REACTIONS (2)
  - Thrombocytopenia [Unknown]
  - Disease recurrence [Unknown]
